FAERS Safety Report 10477115 (Version 1)
Quarter: 2014Q3

REPORT INFORMATION
  Report Type: Spontaneous
  Country: US (occurrence: US)
  Receive Date: 20140926
  Receipt Date: 20140926
  Transmission Date: 20150326
  Serious: No
  Sender: FDA-Public Use
  Company Number: US-BIOGENIDEC-2014BI097129

PATIENT
  Age: 48 Year
  Sex: Female

DRUGS (1)
  1. TECFIDERA [Suspect]
     Active Substance: DIMETHYL FUMARATE
     Indication: MULTIPLE SCLEROSIS
     Dates: start: 20140827

REACTIONS (10)
  - Muscular weakness [Unknown]
  - Lethargy [Unknown]
  - Vomiting [Unknown]
  - Headache [Unknown]
  - Gastric disorder [Unknown]
  - Eye movement disorder [Unknown]
  - Eye disorder [Unknown]
  - Multiple sclerosis relapse [Unknown]
  - Colour blindness acquired [Unknown]
  - Pain [Unknown]

NARRATIVE: CASE EVENT DATE: 201409
